FAERS Safety Report 5572329-5 (Version None)
Quarter: 2007Q4

REPORT INFORMATION
  Report Type: 
  Country: None (occurrence: None)
  Receive Date: 20071219
  Receipt Date: 20071204
  Transmission Date: 20080405
  Serious: Yes (Other)
  Sender: FDA-Public Use
  Company Number: 2007S1012676

PATIENT
  Age: 79 Year
  Sex: Male

DRUGS (2)
  1. PRAZOSIN HYDROCHLORIDE [Suspect]
     Indication: BLOOD PRESSURE
     Dosage: 0.5 MG; TWICDE A DAY; ORAL
     Route: 048
     Dates: start: 20071130, end: 20071202
  2. INDAPAMIDE [Concomitant]

REACTIONS (3)
  - HALLUCINATION [None]
  - NIGHTMARE [None]
  - PHOTOPSIA [None]
